FAERS Safety Report 23133510 (Version 17)
Quarter: 2024Q4

REPORT INFORMATION
  Report Type: Report from Study
  Country: CO (occurrence: CO)
  Receive Date: 20231101
  Receipt Date: 20241105
  Transmission Date: 20250115
  Serious: Yes (Hospitalization, Other)
  Sender: TAKEDA
  Company Number: CO-TAKEDA-2022TUS040807

PATIENT
  Age: 16 Year
  Sex: Female
  Weight: 64 kg

DRUGS (7)
  1. ICATIBANT [Suspect]
     Active Substance: ICATIBANT ACETATE
     Indication: Hereditary angioedema
     Dosage: 1 DOSAGE FORM
     Route: 058
  2. ICATIBANT [Suspect]
     Active Substance: ICATIBANT ACETATE
     Indication: Hereditary angioedema
     Dosage: 1 DOSAGE FORM
     Route: 058
  3. ICATIBANT [Suspect]
     Active Substance: ICATIBANT ACETATE
     Dosage: UNK
     Route: 058
  4. ICATIBANT [Suspect]
     Active Substance: ICATIBANT ACETATE
     Dosage: UNK
     Route: 058
  5. TAKHZYRO [Suspect]
     Active Substance: LANADELUMAB-FLYO
     Indication: Hereditary angioedema
     Dosage: UNK UNK, Q2WEEKS
     Route: 065
  6. TAKHZYRO [Suspect]
     Active Substance: LANADELUMAB-FLYO
     Dosage: 300 MILLIGRAM, Q2WEEKS
     Route: 058
  7. TAKHZYRO [Suspect]
     Active Substance: LANADELUMAB-FLYO
     Dosage: 300 MILLIGRAM, Q2WEEKS
     Route: 065

REACTIONS (20)
  - Gastritis [Recovered/Resolved]
  - Intra-abdominal fluid collection [Recovered/Resolved]
  - Hereditary angioedema [Recovered/Resolved]
  - Tonsillitis [Unknown]
  - Off label use [Unknown]
  - Product use issue [Unknown]
  - Prescription drug used without a prescription [Unknown]
  - Arthropod bite [Recovered/Resolved]
  - Swelling [Recovered/Resolved]
  - Inflammation [Recovered/Resolved]
  - Rhinitis [Recovering/Resolving]
  - Pain [Recovering/Resolving]
  - Road traffic accident [Recovering/Resolving]
  - Joint injury [Not Recovered/Not Resolved]
  - Toothache [Recovering/Resolving]
  - Vulvovaginal candidiasis [Recovering/Resolving]
  - Weight increased [Unknown]
  - Incorrect dose administered [Recovering/Resolving]
  - Pyrexia [Unknown]
  - Headache [Recovering/Resolving]

NARRATIVE: CASE EVENT DATE: 20220618
